FAERS Safety Report 26022676 (Version 2)
Quarter: 2025Q4

REPORT INFORMATION
  Report Type: Spontaneous
  Country: US (occurrence: US)
  Receive Date: 20251110
  Receipt Date: 20251128
  Transmission Date: 20260118
  Serious: No
  Sender: ABBVIE
  Company Number: US-ABBVIE-6532564

PATIENT
  Age: 17 Year
  Sex: Female

DRUGS (2)
  1. HUMIRA [Suspect]
     Active Substance: ADALIMUMAB
     Indication: Rheumatoid arthritis
     Route: 058
     Dates: start: 202503, end: 20250808
  2. METHOTREXATE [Concomitant]
     Active Substance: METHOTREXATE
     Indication: Product used for unknown indication

REACTIONS (4)
  - Asthenia [Recovered/Resolved]
  - Urticaria [Recovered/Resolved]
  - Lethargy [Recovered/Resolved]
  - Feeding disorder [Recovered/Resolved]

NARRATIVE: CASE EVENT DATE: 20250101
